FAERS Safety Report 6677576-7 (Version None)
Quarter: 2010Q2

REPORT INFORMATION
  Report Type: 
  Country: None (occurrence: None)
  Receive Date: 20100412
  Receipt Date: 20100216
  Transmission Date: 20101027
  Serious: No
  Sender: FDA-Public Use
  Company Number: US-ALEXION-A201000183

PATIENT
  Sex: Female

DRUGS (10)
  1. SOLIRIS [Suspect]
     Indication: PAROXYSMAL NOCTURNAL HAEMOGLOBINURIA
     Dosage: UNK
  2. AMITRIPTYLINE HCL [Concomitant]
     Dosage: UNK
     Route: 048
  3. MULTIVITAMIN                       /00831701/ [Concomitant]
     Dosage: UNK
     Route: 048
  4. ASPIRIN [Concomitant]
     Dosage: UNK
     Route: 048
  5. GLUCOSAMINE [Concomitant]
     Dosage: UNK
     Route: 048
  6. SIMVASTATIN [Concomitant]
     Dosage: UNK
     Route: 048
  7. COUMADIN [Concomitant]
     Dosage: UNK
     Route: 048
  8. PLAVIX [Concomitant]
     Dosage: UNK
     Route: 048
  9. ISOSORBIDE DINITRATE [Concomitant]
     Dosage: UNK
     Route: 048
  10. PREDNISOLONE [Concomitant]
     Dosage: UNK
     Route: 048

REACTIONS (1)
  - HEADACHE [None]
